FAERS Safety Report 13031469 (Version 1)
Quarter: 2016Q4

REPORT INFORMATION
  Report Type: Report from Study
  Country: DE (occurrence: DE)
  Receive Date: 20161215
  Receipt Date: 20161215
  Transmission Date: 20170207
  Serious: Yes (Death)
  Sender: FDA-Public Use
  Company Number: DE-BAYER-2016-232411

PATIENT

DRUGS (1)
  1. BETAFERON [Suspect]
     Active Substance: INTERFERON BETA-1B
     Dosage: 250 ?G, QOD
     Route: 064
     Dates: end: 20161015

REACTIONS (2)
  - Foetal heart rate abnormal [Fatal]
  - Foetal exposure timing unspecified [None]

NARRATIVE: CASE EVENT DATE: 2016
